FAERS Safety Report 8964296 (Version 1)
Quarter: 2012Q4

REPORT INFORMATION
  Report Type: 
  Country: US (occurrence: US)
  Receive Date: 20121214
  Receipt Date: 20121214
  Transmission Date: 20130627
  Serious: No
  Sender: FDA-Public Use
  Company Number: US-GLAXOSMITHKLINE-A0963125A

PATIENT
  Age: 65 Year
  Sex: Male

DRUGS (3)
  1. AVODART [Suspect]
     Indication: BENIGN PROSTATIC HYPERPLASIA
     Dosage: 1CAP Per day
     Route: 048
     Dates: start: 200701
  2. HYTRIN [Concomitant]
  3. ANDROGEL [Concomitant]

REACTIONS (4)
  - Dysuria [Not Recovered/Not Resolved]
  - Breast enlargement [Unknown]
  - Erectile dysfunction [Unknown]
  - Loss of libido [Unknown]
